FAERS Safety Report 9490473 (Version 3)
Quarter: 2013Q3

REPORT INFORMATION
  Report Type: Spontaneous
  Country: ES (occurrence: ES)
  Receive Date: 20130830
  Receipt Date: 20130918
  Transmission Date: 20140515
  Serious: Yes (Life-Threatening, Other)
  Sender: FDA-Public Use
  Company Number: ES-RANBAXY-2013RR-72383

PATIENT
  Age: 5 Month
  Sex: Female

DRUGS (1)
  1. PARACETAMOL [Suspect]
     Indication: GASTROENTERITIS
     Dosage: UNK
     Route: 065

REACTIONS (3)
  - Acute hepatic failure [Recovered/Resolved]
  - Idiosyncratic drug reaction [Recovered/Resolved]
  - Hepatic encephalopathy [Recovering/Resolving]
